FAERS Safety Report 18336153 (Version 3)
Quarter: 2020Q4

REPORT INFORMATION
  Report Type: Spontaneous
  Country: HR (occurrence: HR)
  Receive Date: 20201001
  Receipt Date: 20201118
  Transmission Date: 20210113
  Serious: Yes (Hospitalization)
  Sender: FDA-Public Use
  Company Number: HR-CELGENEUS-HRV-20200907349

PATIENT
  Age: 71 Year
  Sex: Female
  Weight: 97 kg

DRUGS (23)
  1. CHLOROPYRAMINE [Concomitant]
     Active Substance: CHLOROPYRAMINE
     Indication: PROPHYLAXIS
     Route: 041
     Dates: start: 20180309
  2. PRIMROSE OIL [Concomitant]
     Indication: SKIN REACTION
     Route: 003
     Dates: start: 20180314
  3. ACICLOVIR SODIUM [Concomitant]
     Active Substance: ACYCLOVIR SODIUM
     Indication: HERPES VIRUS INFECTION
     Dosage: 400 MILLIGRAM
     Route: 048
     Dates: start: 20180302
  4. PANTOPRAZOLE [Concomitant]
     Active Substance: PANTOPRAZOLE
     Indication: GASTRITIS PROPHYLAXIS
     Dosage: 40 MILLIGRAM
     Route: 048
     Dates: start: 20180516
  5. GRANISETRON [Concomitant]
     Active Substance: GRANISETRON
     Indication: PROPHYLAXIS OF NAUSEA AND VOMITING
     Route: 041
     Dates: start: 20180314
  6. ACETYLSALICYLIC ACID [Concomitant]
     Active Substance: ASPIRIN
     Indication: ISCHAEMIC HEART DISEASE PROPHYLAXIS
     Dosage: 100 MILLIGRAM
     Route: 048
     Dates: start: 20180418
  7. AZACITIDINE. [Suspect]
     Active Substance: AZACITIDINE
     Indication: ACUTE MYELOID LEUKAEMIA
     Dosage: 75 MILLIGRAM/SQ. METER
     Route: 058
     Dates: start: 20180314, end: 20200610
  8. BETAMETHASONE. [Concomitant]
     Active Substance: BETAMETHASONE
     Indication: SKIN INDURATION
     Dosage: 0.5 MG/G
     Route: 061
     Dates: start: 20180404
  9. DIAZEPAM. [Concomitant]
     Active Substance: DIAZEPAM
     Indication: DEPRESSION
     Dosage: 10 MILLIGRAM
     Route: 048
     Dates: start: 20181218
  10. PLASMALYTE [Concomitant]
     Active Substance: ELECTROLYTES NOS
     Indication: PROPHYLAXIS
     Route: 065
     Dates: start: 20180312, end: 20180320
  11. VENETOCLAX. [Concomitant]
     Active Substance: VENETOCLAX
     Dosage: 400 MILLIGRAM
     Route: 048
     Dates: start: 20180316
  12. PANTOPRAZOLE [Concomitant]
     Active Substance: PANTOPRAZOLE
     Indication: DYSPEPSIA
     Dosage: 40 MILLIGRAM
     Route: 048
     Dates: start: 2010
  13. DIAZEPAM. [Concomitant]
     Active Substance: DIAZEPAM
     Indication: ANXIETY DISORDER
  14. RANITIDINE. [Concomitant]
     Active Substance: RANITIDINE
     Indication: STRESS ULCER
  15. FILGRASTIM [Concomitant]
     Active Substance: FILGRASTIM
     Indication: NEUTROPENIA
     Dosage: TAKEN AT THE END OF EVERY CYCLE FOR 3 DAYS
     Route: 058
     Dates: start: 20190318
  16. PANTOPRAZOLE [Concomitant]
     Active Substance: PANTOPRAZOLE
     Indication: STRESS ULCER
  17. SINERSUL F [Concomitant]
     Indication: INFECTION PROPHYLAXIS
     Dosage: 800 + 160 MG
     Route: 048
     Dates: start: 20190528
  18. VENETOCLAX. [Concomitant]
     Active Substance: VENETOCLAX
     Dosage: 200 MILLIGRAM
     Route: 048
     Dates: start: 20180315, end: 20180315
  19. RANITIDINE. [Concomitant]
     Active Substance: RANITIDINE
     Indication: DYSPEPSIA
     Route: 048
     Dates: start: 20180314
  20. METHYLPREDNISOLONE. [Concomitant]
     Active Substance: METHYLPREDNISOLONE
     Indication: PROPHYLAXIS
     Route: 041
     Dates: start: 20180309
  21. NORMAL SALINE [Concomitant]
     Active Substance: SODIUM CHLORIDE
     Indication: PROPHYLAXIS
     Route: 065
     Dates: start: 20180309, end: 20180311
  22. VENETOCLAX. [Concomitant]
     Active Substance: VENETOCLAX
     Indication: ACUTE MYELOID LEUKAEMIA
     Dosage: 100 MILLIGRAM
     Route: 048
     Dates: start: 20180314, end: 20180314
  23. ZOLPIDEM [Concomitant]
     Active Substance: ZOLPIDEM TARTRATE
     Indication: INSOMNIA
     Route: 048
     Dates: start: 2010

REACTIONS (1)
  - Peripheral sensorimotor neuropathy [Not Recovered/Not Resolved]

NARRATIVE: CASE EVENT DATE: 20200801
